FAERS Safety Report 7381026-5 (Version None)
Quarter: 2011Q1

REPORT INFORMATION
  Report Type: 
  Country: None (occurrence: None)
  Receive Date: 20110329
  Receipt Date: 20110325
  Transmission Date: 20110831
  Serious: No
  Sender: FDA-Public Use
  Company Number: US-TEVA-273379USA

PATIENT
  Sex: Female
  Weight: 54.026 kg

DRUGS (2)
  1. SYNTHROID [Concomitant]
     Indication: HYPOTHYROIDISM
     Route: 048
  2. PLAN B ONE-STEP [Suspect]
     Indication: POST COITAL CONTRACEPTION
     Route: 048
     Dates: start: 20110322, end: 20110322

REACTIONS (5)
  - MOOD ALTERED [None]
  - NAUSEA [None]
  - DIZZINESS [None]
  - BREAST TENDERNESS [None]
  - FATIGUE [None]
